FAERS Safety Report 8868331 (Version 1)
Quarter: 2012Q4

REPORT INFORMATION
  Report Type: 
  Country: US (occurrence: US)
  Receive Date: 20121026
  Receipt Date: 20121026
  Transmission Date: 20130627
  Serious: No
  Sender: FDA-Public Use
  Company Number: US-AMGEN-USASP2012041132

PATIENT
  Age: 74 Year
  Sex: Female

DRUGS (1)
  1. ENBREL [Suspect]
     Indication: RHEUMATOID ARTHRITIS
     Dosage: 50 mg, qwk
     Route: 058
     Dates: start: 201201

REACTIONS (10)
  - Tenderness [Unknown]
  - Pain [Unknown]
  - Hypoaesthesia [Unknown]
  - Oedema peripheral [Unknown]
  - Skin discolouration [Unknown]
  - Dry skin [Unknown]
  - Injection site erythema [Unknown]
  - Paraesthesia [Unknown]
  - Injection site pruritus [Unknown]
  - Injection site swelling [Unknown]
